FAERS Safety Report 16264534 (Version 1)
Quarter: 2019Q2

REPORT INFORMATION
  Report Type: Spontaneous
  Country: US (occurrence: US)
  Receive Date: 20190502
  Receipt Date: 20190502
  Transmission Date: 20190711
  Serious: No
  Sender: FDA-Public Use
  Company Number: US-BAYER-2019-087560

PATIENT
  Age: 14 Year
  Sex: Male

DRUGS (2)
  1. DEXAMETH [Concomitant]
     Active Substance: DEXAMETHASONE
     Dosage: UNK
  2. ALEVE [Suspect]
     Active Substance: NAPROXEN SODIUM
     Indication: ARTHROPATHY
     Dosage: UNK
     Dates: start: 20190429

REACTIONS (1)
  - Incorrect dosage administered [Recovered/Resolved]

NARRATIVE: CASE EVENT DATE: 20190429
